FAERS Safety Report 5247993-0 (Version None)
Quarter: 2007Q1

REPORT INFORMATION
  Report Type: 
  Country: None (occurrence: None)
  Receive Date: 20070226
  Receipt Date: 20070226
  Transmission Date: 20070707
  Serious: Yes (Death, Life-Threatening, Hospitalization)
  Sender: FDA-Public Use
  Company Number: None

PATIENT
  Age: 74 Year
  Sex: Female

DRUGS (6)
  1. ABILIFY [Suspect]
     Indication: AFFECTIVE DISORDER
     Dosage: 5MG -5MG @0600AM + 30MG@ 1800- DAILY ? PO
     Route: 048
     Dates: start: 20061011, end: 20061011
  2. ABILIFY [Suspect]
     Indication: DEMENTIA
     Dosage: 5MG -5MG @0600AM + 30MG@ 1800- DAILY ? PO
     Route: 048
     Dates: start: 20061011, end: 20061011
  3. DILTIAZEM [Concomitant]
  4. CYMBALTA [Concomitant]
  5. SEROQUEL [Concomitant]
  6. EFFEXOR [Concomitant]

REACTIONS (4)
  - CARDIAC ARREST [None]
  - CONVULSION [None]
  - NEUROLEPTIC MALIGNANT SYNDROME [None]
  - RESPIRATORY DISTRESS [None]
